FAERS Safety Report 6396064-9 (Version None)
Quarter: 2009Q4

REPORT INFORMATION
  Report Type: 
  Country: None (occurrence: None)
  Receive Date: 20091006
  Receipt Date: 20090921
  Transmission Date: 20100525
  Serious: Yes (Hospitalization, Other)
  Sender: FDA-Public Use
  Company Number: 20090421

PATIENT
  Age: 52 Year
  Sex: Male

DRUGS (1)
  1. POTASSIUM PHOSPHATES [Suspect]
     Indication: HYPOPHOSPHATAEMIA
     Dosage: HOURS INTRAVENOUS
     Route: 042

REACTIONS (3)
  - COMPLICATIONS OF TRANSPLANTED KIDNEY [None]
  - NEPHROPATHY [None]
  - POLYOMAVIRUS-ASSOCIATED NEPHROPATHY [None]
